FAERS Safety Report 24146479 (Version 1)
Quarter: 2024Q3

REPORT INFORMATION
  Report Type: Spontaneous
  Country: GB (occurrence: GB)
  Receive Date: 20240729
  Receipt Date: 20240729
  Transmission Date: 20241017
  Serious: Yes (Hospitalization)
  Sender: MYLAN
  Company Number: GB-MYLANLABS-2024M1046959

PATIENT
  Sex: Female

DRUGS (1)
  1. CLOZARIL [Suspect]
     Active Substance: CLOZAPINE
     Indication: Product used for unknown indication
     Dosage: UNK
     Route: 048
     Dates: start: 20030904, end: 20240507

REACTIONS (5)
  - Hospitalisation [Recovered/Resolved]
  - Malaise [Unknown]
  - Adverse drug reaction [Unknown]
  - Psychotic disorder [Unknown]
  - Salivary hypersecretion [Unknown]
